FAERS Safety Report 8372485-X (Version None)
Quarter: 2012Q2

REPORT INFORMATION
  Report Type: 
  Country: None (occurrence: None)
  Receive Date: 20120521
  Receipt Date: 20120514
  Transmission Date: 20120825
  Serious: No
  Sender: FDA-Public Use
  Company Number: US-PFIZER INC-2012117510

PATIENT
  Sex: Male

DRUGS (7)
  1. INSULIN [Concomitant]
     Dosage: UNK
  2. CEFEPIME [Concomitant]
     Dosage: UNK
  3. MUCINEX [Concomitant]
     Dosage: UNK
  4. PREDNISONE [Concomitant]
     Dosage: UNK
  5. TYGACIL [Suspect]
     Indication: PNEUMONIA
     Dosage: 50 MG, 2X/DAY
     Route: 042
     Dates: start: 20120501
  6. CELLCEPT [Concomitant]
     Dosage: UNK
  7. GUAIFENESIN [Concomitant]
     Dosage: UNK

REACTIONS (2)
  - BLOOD GLUCOSE INCREASED [None]
  - SPUTUM DISCOLOURED [None]
